FAERS Safety Report 5553447-4 (Version None)
Quarter: 2007Q4

REPORT INFORMATION
  Report Type: 
  Country: None (occurrence: None)
  Receive Date: 20071211
  Receipt Date: 20071128
  Transmission Date: 20080405
  Serious: Yes (Hospitalization)
  Sender: FDA-Public Use
  Company Number: 17630

PATIENT
  Age: 68 Year
  Sex: Female

DRUGS (6)
  1. PACLITAXEL [Suspect]
     Dosage: 325 MG FREQ IV
     Route: 042
     Dates: start: 20070911
  2. CARBOPLATIN [Suspect]
     Dosage: 525 MG OTH IV
     Route: 042
     Dates: start: 20070911, end: 20070911
  3. DOLASETRON MESILATE [Concomitant]
  4. DEXAMETHASONE TAB [Concomitant]
  5. DIPHENHYDRAMINE HYDROCHLORIDE [Concomitant]
  6. CIMETIDINE [Concomitant]

REACTIONS (5)
  - APNOEA [None]
  - DYSPNOEA [None]
  - HYPERHIDROSIS [None]
  - PULSE ABSENT [None]
  - UNRESPONSIVE TO STIMULI [None]
